FAERS Safety Report 4477517-7 (Version None)
Quarter: 2004Q4

REPORT INFORMATION
  Report Type: 
  Country: None (occurrence: None)
  Receive Date: 20041018
  Receipt Date: 20040913
  Transmission Date: 20050328
  Serious: Yes (Hospitalization)
  Sender: FDA-Public Use
  Company Number: FR-GLAXOSMITHKLINE-B0345629A

PATIENT
  Age: 34 Year
  Sex: Female

DRUGS (5)
  1. DEROXAT [Suspect]
     Dosage: 20MG PER DAY
     Route: 048
     Dates: start: 20040907, end: 20040909
  2. SEROPRAM [Concomitant]
     Route: 048
     Dates: start: 20030101, end: 20040906
  3. HEMIPRALON [Concomitant]
     Indication: MITRAL VALVE PROLAPSE
  4. FLECAINE [Concomitant]
     Indication: MITRAL VALVE PROLAPSE
     Route: 048
  5. NOCERTONE [Concomitant]
     Indication: MIGRAINE

REACTIONS (4)
  - DYSKINESIA [None]
  - FATIGUE [None]
  - PYREXIA [None]
  - SOMNOLENCE [None]
